FAERS Safety Report 12206435 (Version 2)
Quarter: 2016Q2

REPORT INFORMATION
  Report Type: Spontaneous
  Country: US (occurrence: US)
  Receive Date: 20160324
  Receipt Date: 20160415
  Transmission Date: 20160815
  Serious: No
  Sender: FDA-Public Use
  Company Number: US-PFIZER INC-2015327884

PATIENT
  Age: 52 Year
  Sex: Male
  Weight: 87.98 kg

DRUGS (20)
  1. METOLAZONE. [Concomitant]
     Active Substance: METOLAZONE
     Dosage: .5 MG ORAL TABLET, 1 TAB TWICE WEEKLY; TUES, THURS
     Route: 048
  2. SPIRONOLACTONE. [Concomitant]
     Active Substance: SPIRONOLACTONE
     Dosage: 12.5 MG, DAILY
     Route: 048
  3. DOXEPIN [Concomitant]
     Active Substance: DOXEPIN
     Dosage: 10 MG, 1X/DAY AT BEDTIME
  4. NITROGLYCERIN. [Concomitant]
     Active Substance: NITROGLYCERIN
     Dosage: 0.4 MG, AS NEEDED MAY REPEAT EVERY 30 TO 45 MINUTES
     Route: 060
  5. CITALOPRAM [Concomitant]
     Active Substance: CITALOPRAM HYDROBROMIDE
     Dosage: 10 MG, DAILY
     Route: 048
  6. ALBUTEROL. [Concomitant]
     Active Substance: ALBUTEROL
     Dosage: 1 VIAL BY NEBULIZER EVERY 6 HOURS AS NEEDED
  7. LEVOTHYROXINE. [Concomitant]
     Active Substance: LEVOTHYROXINE
     Dosage: 25 UG, DAILY
     Route: 048
  8. ULORIC [Concomitant]
     Active Substance: FEBUXOSTAT
     Dosage: 80 MG, DAILY
     Route: 048
  9. LYRICA [Suspect]
     Active Substance: PREGABALIN
     Dosage: 75 MG, 1X/DAY
     Route: 048
  10. DALIRESP [Concomitant]
     Active Substance: ROFLUMILAST
     Dosage: 500 UG, DAILY
     Route: 048
  11. INCRUSE ELLIPTA [Concomitant]
     Active Substance: UMECLIDINIUM BROMIDE
     Dosage: 62.5 UG, 1X/DAY (1 INHALATION AT BEDTIME)
  12. DOXEPIN [Concomitant]
     Active Substance: DOXEPIN
     Dosage: 25 MG, DAILY
     Route: 048
  13. ATORVASTATIN [Concomitant]
     Active Substance: ATORVASTATIN
     Dosage: 40 MG, DAILY
     Route: 048
  14. ASPIRIN. [Concomitant]
     Active Substance: ASPIRIN
     Dosage: 325 MG, DAILY
     Route: 048
  15. TORSEMIDE. [Concomitant]
     Active Substance: TORSEMIDE
     Dosage: 15 MG, WEEKLY
     Route: 048
  16. PROAIR HFA [Concomitant]
     Active Substance: ALBUTEROL SULFATE
     Dosage: 2 DF, 2X/DAY
  17. LORAZEPAM. [Concomitant]
     Active Substance: LORAZEPAM
     Dosage: 2 MG, 1X/DAY AT BEDTIME
     Route: 048
  18. METOPROLOL TARTRATE. [Concomitant]
     Active Substance: METOPROLOL TARTRATE
     Dosage: 12.5 MG, DAILY
     Route: 048
  19. VIMPAT [Concomitant]
     Active Substance: LACOSAMIDE
     Dosage: 150 MG, 2X/DAY
     Route: 048
  20. NASONEX [Concomitant]
     Active Substance: MOMETASONE FUROATE
     Dosage: 2 SPRAYS EACH NOSTRIL DAILY

REACTIONS (9)
  - Stasis dermatitis [Unknown]
  - Drug dispensing error [Unknown]
  - Asthenopia [Unknown]
  - Dental discomfort [Unknown]
  - Back pain [Unknown]
  - Therapeutic response unexpected [Unknown]
  - Contusion [Unknown]
  - Depression [Recovered/Resolved]
  - Pre-existing condition improved [Unknown]
